FAERS Safety Report 19228903 (Version 2)
Quarter: 2021Q3

REPORT INFORMATION
  Report Type: Spontaneous
  Country: BR (occurrence: BR)
  Receive Date: 20210507
  Receipt Date: 20210825
  Transmission Date: 20211014
  Serious: Yes (Hospitalization)
  Sender: FDA-Public Use
  Company Number: BR-ROCHE-2822967

PATIENT
  Age: 35 Year
  Sex: Female

DRUGS (7)
  1. PERJETA [Suspect]
     Active Substance: PERTUZUMAB
     Indication: TRIPLE POSITIVE BREAST CANCER
     Route: 065
     Dates: start: 20190806
  2. TAMOXIFEN [Concomitant]
     Active Substance: TAMOXIFEN
     Indication: TRIPLE POSITIVE BREAST CANCER
     Dates: start: 201912
  3. LEUPRORELIN [Concomitant]
     Active Substance: LEUPROLIDE ACETATE
     Route: 030
     Dates: start: 20200512
  4. VENLIFT [Concomitant]
     Active Substance: VENLAFAXINE HYDROCHLORIDE
  5. GABAPENTIN. [Concomitant]
     Active Substance: GABAPENTIN
     Dosage: 300?600?600
  6. DOCETAXEL. [Concomitant]
     Active Substance: DOCETAXEL
     Indication: TRIPLE POSITIVE BREAST CANCER
     Dates: start: 20190806, end: 20191121
  7. HERCEPTIN [Suspect]
     Active Substance: TRASTUZUMAB
     Indication: TRIPLE POSITIVE BREAST CANCER
     Route: 065
     Dates: start: 20190806

REACTIONS (3)
  - Somnolence [Recovered/Resolved]
  - Dairy intolerance [Recovered/Resolved]
  - Axonal and demyelinating polyneuropathy [Not Recovered/Not Resolved]
